FAERS Safety Report 8419293-9 (Version None)
Quarter: 2012Q2

REPORT INFORMATION
  Report Type: 
  Country: None (occurrence: None)
  Receive Date: 20120601
  Receipt Date: 20120522
  Transmission Date: 20120825
  Serious: Yes (Other)
  Sender: FDA-Public Use
  Company Number: AUR-APL-2012-02385

PATIENT
  Age: 79 Year
  Sex: Female
  Weight: 56.69 kg

DRUGS (6)
  1. METOPROLOL TARTRATE [Suspect]
     Indication: PRODUCT USED FOR UNKNOWN INDICATION
     Dosage: 25 MG (25 MG, 1 IN 1 D)
  2. LIPITOR [Suspect]
     Indication: BLOOD CHOLESTEROL
     Dosage: 20 MG (20 MG, 1 IN 1 D), ORAL
     Route: 048
     Dates: start: 20070101
  3. REMICADE [Suspect]
     Indication: RHEUMATOID ARTHRITIS
     Dosage: INTRAVENOUS
     Route: 042
     Dates: start: 20020101
  4. DILTIAZEM [Suspect]
     Indication: PRODUCT USED FOR UNKNOWN INDICATION
     Dosage: 1 IN 1 D
  5. MKETHOTREXATE(METHOTREXATE) [Concomitant]
  6. LISINOPRIL [Suspect]
     Indication: HYPERTENSION
     Dosage: 20 MG (20 MG,1 IN 1 D), ORAL
     Route: 048
     Dates: start: 20090101

REACTIONS (9)
  - JOINT SWELLING [None]
  - ERYTHEMA [None]
  - FEELING ABNORMAL [None]
  - HYPERTENSION [None]
  - PRURITUS [None]
  - BLOOD CHOLESTEROL INCREASED [None]
  - RASH [None]
  - ABNORMAL BEHAVIOUR [None]
  - OEDEMA PERIPHERAL [None]
